FAERS Safety Report 6652739-5 (Version None)
Quarter: 2010Q1

REPORT INFORMATION
  Report Type: 
  Country: None (occurrence: None)
  Receive Date: 20100326
  Receipt Date: 20100312
  Transmission Date: 20100710
  Serious: Yes (Death, Hospitalization, Other)
  Sender: FDA-Public Use
  Company Number: AU-ELI_LILLY_AND_COMPANY-AU201003000371

PATIENT
  Age: 84 Year
  Sex: Female

DRUGS (11)
  1. FORTEO [Suspect]
     Indication: OSTEOPOROSIS
     Dosage: 20 UG, DAILY (1/D)
     Route: 065
     Dates: start: 20090901, end: 20100101
  2. VESICARE [Concomitant]
     Dosage: 10 MG, EACH EVENING
     Route: 048
  3. ASPIRIN [Concomitant]
     Dosage: 100 MG, DAILY (1/D)
     Route: 048
  4. GLUCOSAMINE [Concomitant]
     Dosage: 250 MG, 2/D
     Route: 048
  5. OSTELIN [Concomitant]
     Dosage: UNK, DAILY (1/D)
     Route: 048
  6. PANTOPRAZOLE [Concomitant]
     Dosage: 40 MG, DAILY (1/D)
     Route: 048
  7. CALTRATE /00108001/ [Concomitant]
     Dosage: 600 MG, DAILY (1/D)
     Route: 065
  8. GABAPENTIN [Concomitant]
     Dosage: 100 MG, 3/D
     Route: 048
  9. ACETAMINOPHEN [Concomitant]
     Dosage: 1 G, DAILY (1/D)
     Route: 048
  10. COLOXYL WITH SENNA [Concomitant]
     Dosage: UNK, 2/D
     Route: 048
  11. FENTANYL [Concomitant]
     Dosage: UNK, UNKNOWN
     Route: 065

REACTIONS (5)
  - BILE DUCT CANCER [None]
  - CHOLELITHIASIS [None]
  - GALLBLADDER CANCER [None]
  - METASTASES TO LIVER [None]
  - OSTEOPOROSIS [None]
